FAERS Safety Report 10098839 (Version 1)
Quarter: 2014Q2

REPORT INFORMATION
  Report Type: Spontaneous
  Country: US (occurrence: US)
  Receive Date: 20140423
  Receipt Date: 20140423
  Transmission Date: 20141212
  Serious: No
  Sender: FDA-Public Use
  Company Number: US-TEVA-476238USA

PATIENT
  Age: 47 Year
  Sex: Female
  Weight: 66.74 kg

DRUGS (5)
  1. QNASL [Suspect]
     Indication: SEASONAL ALLERGY
     Dates: start: 20140411, end: 20140415
  2. XANAX [Concomitant]
     Indication: PANIC ATTACK
  3. HYDROCODONE [Concomitant]
     Indication: MYALGIA
  4. METOPROLOL [Concomitant]
     Indication: HYPERTENSION
  5. SIMVASTATIN [Concomitant]
     Indication: BLOOD CHOLESTEROL INCREASED

REACTIONS (1)
  - Joint swelling [Not Recovered/Not Resolved]
